FAERS Safety Report 10309240 (Version 1)
Quarter: 2014Q3

REPORT INFORMATION
  Report Type: Spontaneous
  Country: BR (occurrence: BR)
  Receive Date: 20140716
  Receipt Date: 20140716
  Transmission Date: 20150326
  Serious: Yes (Death, Hospitalization)
  Sender: FDA-Public Use
  Company Number: BR-ROCHE-1433860

PATIENT
  Sex: Male
  Weight: 80 kg

DRUGS (1)
  1. ROCEFIN [Suspect]
     Active Substance: CEFTRIAXONE SODIUM
     Indication: ABDOMINAL INFECTION
     Dosage: 4 PACKAGES.
     Route: 042

REACTIONS (3)
  - Drug ineffective [Unknown]
  - Death [Fatal]
  - Enteritis infectious [Unknown]
